FAERS Safety Report 5511530-3 (Version None)
Quarter: 2007Q4

REPORT INFORMATION
  Report Type: 
  Country: None (occurrence: None)
  Receive Date: 20071109
  Receipt Date: 20071031
  Transmission Date: 20080405
  Serious: Yes (Life-Threatening, Hospitalization)
  Sender: FDA-Public Use
  Company Number: B0494573A

PATIENT
  Age: 67 Year
  Sex: Male

DRUGS (9)
  1. AUGMENTIN '125' [Suspect]
     Dosage: 1G THREE TIMES PER DAY
     Route: 042
     Dates: start: 20070104, end: 20070104
  2. SERETIDE [Concomitant]
     Route: 065
  3. CETIRIZINE HCL [Concomitant]
     Route: 065
  4. AERIUS [Concomitant]
     Route: 065
  5. EXOMUC [Concomitant]
     Route: 065
  6. ASPIRIN [Concomitant]
     Route: 065
  7. XATRAL LP [Concomitant]
     Route: 065
  8. SPIRIVA [Concomitant]
     Route: 065
  9. CRESTOR [Concomitant]
     Route: 065

REACTIONS (5)
  - BREATH SOUNDS ABNORMAL [None]
  - BRONCHOSPASM [None]
  - DYSPNOEA [None]
  - OXYGEN SATURATION DECREASED [None]
  - RASH [None]
